FAERS Safety Report 6587603-3 (Version None)
Quarter: 2010Q1

REPORT INFORMATION
  Report Type: 
  Country: None (occurrence: None)
  Receive Date: 20100218
  Receipt Date: 20100209
  Transmission Date: 20100710
  Serious: Yes (Hospitalization, Other)
  Sender: FDA-Public Use
  Company Number: US-JNJFOC-20100205722

PATIENT
  Sex: Male
  Weight: 77.57 kg

DRUGS (6)
  1. REMICADE [Suspect]
     Indication: CROHN'S DISEASE
     Route: 042
  2. REMICADE [Suspect]
     Route: 042
  3. ALBUTEROL [Concomitant]
     Indication: ASTHMA
  4. ADVAIR DISKUS 100/50 [Concomitant]
     Indication: ASTHMA
     Dosage: 25/500 TWICE A DAY
  5. SINGULAIR [Concomitant]
     Indication: ASTHMA
  6. ZYRTEC [Concomitant]
     Indication: MULTIPLE ALLERGIES

REACTIONS (6)
  - ARTHRALGIA [None]
  - CROHN'S DISEASE [None]
  - HOSPITALISATION [None]
  - MUSCLE CONTRACTIONS INVOLUNTARY [None]
  - PAIN IN EXTREMITY [None]
  - POISONING [None]
